FAERS Safety Report 6962969-0 (Version None)
Quarter: 2010Q3

REPORT INFORMATION
  Report Type: 
  Country: None (occurrence: None)
  Receive Date: 20100902
  Receipt Date: 20100825
  Transmission Date: 20110219
  Serious: Yes (Other)
  Sender: FDA-Public Use
  Company Number: US-ROCHE-719428

PATIENT
  Sex: Female
  Weight: 74.8 kg

DRUGS (5)
  1. BONIVA [Suspect]
     Indication: OSTEOPOROSIS
     Dosage: STRENGTH: 3MG/3ML; FREQUENCY: 1 DOSE
     Route: 042
     Dates: start: 20100723
  2. CEFEXIN [Concomitant]
     Dosage: DRUG REPORTED AS CEFEXIR
  3. LEVOTHYROXINE [Concomitant]
     Dosage: DRUG: LEVOTHYROXINE 100
  4. TOVIAZ [Concomitant]
  5. TRILIPIX [Concomitant]

REACTIONS (3)
  - BONE PAIN [None]
  - INFLUENZA LIKE ILLNESS [None]
  - PARALYSIS [None]
